FAERS Safety Report 26163002 (Version 1)
Quarter: 2025Q4

REPORT INFORMATION
  Report Type: Spontaneous
  Country: US (occurrence: None)
  Receive Date: 20251215
  Receipt Date: 20251215
  Transmission Date: 20260118
  Serious: Yes (Hospitalization, Other)
  Sender: FDA-CTU
  Company Number: None

PATIENT
  Age: 93 Year
  Sex: Male

DRUGS (1)
  1. LENALIDOMIDE [Suspect]
     Active Substance: LENALIDOMIDE
     Indication: Plasma cell myeloma
     Dosage: 10MG QD ORAL??THERAPY STOP:  ON HOLD FOR NOW
     Route: 048
     Dates: start: 20250925

REACTIONS (3)
  - Sepsis [None]
  - Therapy interrupted [None]
  - Pyelonephritis acute [None]

NARRATIVE: CASE EVENT DATE: 20251128
